FAERS Safety Report 6833317-1 (Version None)
Quarter: 2010Q3

REPORT INFORMATION
  Report Type: 
  Country: None (occurrence: None)
  Receive Date: 20100712
  Receipt Date: 20100609
  Transmission Date: 20110219
  Serious: Yes (Hospitalization)
  Sender: FDA-Public Use
  Company Number: PHHY2010JP34314

PATIENT
  Sex: Male

DRUGS (1)
  1. DIOVAN [Suspect]
     Indication: HYPERTENSION
     Dosage: 80 MG, QD
     Route: 048
     Dates: start: 20030101, end: 20100518

REACTIONS (4)
  - BLISTER [None]
  - DRUG ERUPTION [None]
  - ERYTHEMA [None]
  - PHOTOSENSITIVITY REACTION [None]
